FAERS Safety Report 14829314 (Version 1)
Quarter: 2018Q2

REPORT INFORMATION
  Report Type: Spontaneous
  Country: US (occurrence: US)
  Receive Date: 20180430
  Receipt Date: 20180430
  Transmission Date: 20180711
  Serious: No
  Sender: FDA-Public Use
  Company Number: US-BAYER-2018-075278

PATIENT
  Age: 72 Year
  Sex: Male
  Weight: 91 kg

DRUGS (3)
  1. LOTRIMIN ULTRA [Suspect]
     Active Substance: BUTENAFINE HYDROCHLORIDE
     Indication: ONYCHOMYCOSIS
  2. LOTRIMIN ULTRA [Suspect]
     Active Substance: BUTENAFINE HYDROCHLORIDE
     Indication: THERAPEUTIC SKIN CARE TOPICAL
     Dosage: UNK, QD
     Route: 061
     Dates: start: 20180416
  3. INSULIN [Concomitant]
     Active Substance: INSULIN NOS

REACTIONS (4)
  - Product use in unapproved indication [Unknown]
  - Circumstance or information capable of leading to medication error [Unknown]
  - Product administered at inappropriate site [Unknown]
  - Product use issue [Unknown]

NARRATIVE: CASE EVENT DATE: 20180416
